FAERS Safety Report 7264137-4 (Version None)
Quarter: 2011Q1

REPORT INFORMATION
  Report Type: 
  Country: None (occurrence: None)
  Receive Date: 20110131
  Receipt Date: 20110122
  Transmission Date: 20110831
  Serious: Yes (Hospitalization)
  Sender: FDA-Public Use
  Company Number: FR-BIOGENIDEC-2009BI028588

PATIENT
  Age: 36 Year
  Sex: Female
  Weight: 65 kg

DRUGS (9)
  1. IMOVANE [Concomitant]
  2. TYSABRI [Suspect]
     Indication: MULTIPLE SCLEROSIS
     Route: 042
     Dates: start: 20070401, end: 20090605
  3. LAROXYL [Concomitant]
     Route: 048
  4. RIVOTRIL [Concomitant]
  5. SEROPLEX [Concomitant]
     Route: 048
  6. NEXIUM [Concomitant]
  7. DITROPAN [Concomitant]
     Route: 048
  8. XANAX [Concomitant]
  9. NOCTAMIDE [Concomitant]
     Route: 048

REACTIONS (4)
  - MULTIPLE SCLEROSIS RELAPSE [None]
  - THROMBOPHLEBITIS [None]
  - PROGRESSIVE MULTIFOCAL LEUKOENCEPHALOPATHY [None]
  - IMMUNE RECONSTITUTION SYNDROME [None]
